FAERS Safety Report 8363469-6 (Version None)
Quarter: 2012Q1

REPORT INFORMATION
  Report Type: 
  Country: None (occurrence: None)
  Receive Date: 20120323
  Receipt Date: 20110411
  Transmission Date: 20120608
  Serious: Yes (Other)
  Sender: FDA-Public Use
  Company Number: 163-21880-11041462

PATIENT
  Age: 68 Year
  Sex: Male

DRUGS (6)
  1. REVLIMID [Suspect]
     Indication: MYELODYSPLASTIC SYNDROME
     Dosage: 10 MG, 1 IN 1 D, PO
     Route: 048
     Dates: start: 20110325
  2. PRILOSEC [Concomitant]
  3. MULTIVITAMINS (MULTIVITAINS) [Concomitant]
  4. CARDIZEM [Concomitant]
  5. LORTAB [Concomitant]
  6. DIGOXIN [Concomitant]

REACTIONS (1)
  - PLATELET COUNT DECREASED [None]
